FAERS Safety Report 19406424 (Version 5)
Quarter: 2021Q4

REPORT INFORMATION
  Report Type: Report from Study
  Country: ES (occurrence: ES)
  Receive Date: 20210611
  Receipt Date: 20211027
  Transmission Date: 20220303
  Serious: Yes (Hospitalization, Other)
  Sender: FDA-Public Use
  Company Number: ES-GLAXOSMITHKLINE-ES2021GSK126859

PATIENT
  Age: 69 Year
  Sex: Female
  Weight: 67 kg

DRUGS (7)
  1. BELANTAMAB MAFODOTIN [Suspect]
     Active Substance: BELANTAMAB MAFODOTIN
     Indication: Plasma cell myeloma
     Dosage: 100MG/VIAL/2.5MG/KG, EVERY 3 WEEKS
     Route: 042
     Dates: start: 20210607
  2. ATORVASTATIN [Concomitant]
     Active Substance: ATORVASTATIN
     Dosage: 10 MG, C24H
     Route: 048
     Dates: start: 2012
  3. FUROSEMIDE [Concomitant]
     Active Substance: FUROSEMIDE
     Dosage: 40 MG, C24H
     Route: 048
     Dates: start: 2012
  4. ATENOLOL [Concomitant]
     Active Substance: ATENOLOL
     Dosage: 50 MG, C24H
     Route: 048
     Dates: start: 2012
  5. FENTANYL [Concomitant]
     Active Substance: FENTANYL
     Dosage: 75 MG, C72H
     Dates: start: 2018
  6. OMEPRAZOLE [Concomitant]
     Active Substance: OMEPRAZOLE
     Dosage: 20 MG, C24H
     Route: 048
     Dates: start: 2012
  7. SERTRALINE [Concomitant]
     Active Substance: SERTRALINE HYDROCHLORIDE
     Dosage: 50 MG, C 24 H
     Route: 048
     Dates: start: 2012

REACTIONS (2)
  - Hepatic enzyme increased [Not Recovered/Not Resolved]
  - Pyrexia [Not Recovered/Not Resolved]

NARRATIVE: CASE EVENT DATE: 20210607
